FAERS Safety Report 23729853 (Version 2)
Quarter: 2024Q2

REPORT INFORMATION
  Report Type: Spontaneous
  Country: JP (occurrence: JP)
  Receive Date: 20240411
  Receipt Date: 20240430
  Transmission Date: 20240716
  Serious: Yes (Death)
  Sender: FDA-Public Use
  Company Number: JP-CHUGAI-2024011613

PATIENT
  Age: 8 Decade
  Sex: Male

DRUGS (1)
  1. HEMLIBRA [Suspect]
     Active Substance: EMICIZUMAB-KXWH
     Indication: Acquired haemophilia
     Dosage: 90 MILLIGRAM, ONCE/WEEK
     Route: 058
     Dates: start: 20240226, end: 20240319

REACTIONS (1)
  - Bradyarrhythmia [Fatal]
